FAERS Safety Report 4326406-7 (Version None)
Quarter: 2004Q1

REPORT INFORMATION
  Report Type: 
  Country: None (occurrence: None)
  Receive Date: 20040325
  Receipt Date: 20031006
  Transmission Date: 20041129
  Serious: No
  Sender: FDA-Public Use
  Company Number: US050354

PATIENT
  Age: 42 Year
  Sex: Female
  Weight: 62.7 kg

DRUGS (5)
  1. NEULASTA [Suspect]
     Indication: CHEMOTHERAPY
     Dosage: 6 MG, AFTER CHEMO, SC
     Route: 058
     Dates: start: 20030402
  2. DOCETAXEL [Concomitant]
  3. GRANISETRON HCL [Concomitant]
  4. DEXAMETHASONE [Concomitant]
  5. WARFARIN SODIUM [Concomitant]

REACTIONS (2)
  - BONE PAIN [None]
  - JOINT SWELLING [None]
